FAERS Safety Report 18630152 (Version 2)
Quarter: 2020Q4

REPORT INFORMATION
  Report Type: Report from Study
  Country: US (occurrence: US)
  Receive Date: 20201217
  Receipt Date: 20201221
  Transmission Date: 20210114
  Serious: No
  Sender: FDA-Public Use
  Company Number: NVSC2020US331925

PATIENT
  Age: 64 Year
  Sex: Female

DRUGS (1)
  1. COSENTYX [Suspect]
     Active Substance: SECUKINUMAB
     Indication: PSORIASIS
     Dosage: 300 MG, QW 2 PENS AT WEEKS 0,1,2,3,4 AND ONCE EVERY 4 WEEKS THEREAFTER
     Route: 058

REACTIONS (2)
  - Pruritus [Unknown]
  - Psoriasis [Unknown]
